FAERS Safety Report 21400763 (Version 1)
Quarter: 2022Q4

REPORT INFORMATION
  Report Type: Spontaneous
  Country: EG (occurrence: EG)
  Receive Date: 20221003
  Receipt Date: 20221003
  Transmission Date: 20230113
  Serious: Yes (Life-Threatening, Hospitalization, Disabling, Other)
  Sender: FDA-Public Use
  Company Number: EG-NOVOPROD-962678

PATIENT
  Age: 64 Year
  Sex: Male

DRUGS (3)
  1. INSULIN HUMAN [Suspect]
     Active Substance: INSULIN HUMAN
     Dosage: 55 IU, QD (40 U MORNING, 15 U NIGHT )
     Dates: start: 20220515
  2. INSULIN HUMAN [Suspect]
     Active Substance: INSULIN HUMAN
     Indication: Diabetes mellitus
     Dosage: 45 IU, QD (30U MORNING, 15U NIGHT )
  3. INSULIN HUMAN [Suspect]
     Active Substance: INSULIN HUMAN
     Indication: Diabetes mellitus
     Dosage: UNK

REACTIONS (4)
  - Cardiac operation [Unknown]
  - Thrombosis [Unknown]
  - Visual impairment [Unknown]
  - Haematemesis [Unknown]

NARRATIVE: CASE EVENT DATE: 20190404
